FAERS Safety Report 18627145 (Version 1)
Quarter: 2020Q4

REPORT INFORMATION
  Report Type: Spontaneous
  Country: US (occurrence: US)
  Receive Date: 20201217
  Receipt Date: 20201217
  Transmission Date: 20210114
  Serious: Yes (Hospitalization, Other)
  Sender: FDA-Public Use
  Company Number: US-CURIUM-200500168

PATIENT
  Age: 2 Month
  Sex: Male

DRUGS (2)
  1. LASIX [Concomitant]
     Active Substance: FUROSEMIDE
     Route: 042
     Dates: start: 20050330
  2. TECHNESCAN MAG3 [Suspect]
     Active Substance: TECHNETIUM TC-99M TIATIDE
     Indication: RENAL SCAN
     Route: 042
     Dates: start: 20050330, end: 20050330

REACTIONS (3)
  - Respiratory arrest [Recovered/Resolved]
  - Pallor [Recovered/Resolved]
  - Vomiting projectile [Unknown]

NARRATIVE: CASE EVENT DATE: 20050330
